FAERS Safety Report 8486170-7 (Version None)
Quarter: 2012Q3

REPORT INFORMATION
  Report Type: 
  Country: None (occurrence: None)
  Receive Date: 20120703
  Receipt Date: 20120628
  Transmission Date: 20120928
  Serious: Yes (Death, Life-Threatening, Hospitalization)
  Sender: FDA-Public Use
  Company Number: DE-ELI_LILLY_AND_COMPANY-DE201204003670

PATIENT
  Sex: Male

DRUGS (4)
  1. FORTEO [Suspect]
     Indication: OSTEOPOROSIS
     Dosage: 20 UG, QD
     Route: 058
     Dates: start: 20110929
  2. METHOTREXATE SODIUM [Concomitant]
     Dosage: UNK, WEEKLY (1/W)
     Route: 030
  3. FOLCUR [Concomitant]
     Dosage: 5 MG, WEEKLY (1/W)
  4. PREDNISOLONE [Concomitant]
     Dosage: 5 MG, QD

REACTIONS (8)
  - FALL [None]
  - RASH MACULO-PAPULAR [None]
  - PYREXIA [None]
  - PAIN IN EXTREMITY [None]
  - MULTI-ORGAN FAILURE [None]
  - MUSCLE TIGHTNESS [None]
  - MALAISE [None]
  - SEPSIS [None]
